FAERS Safety Report 20536927 (Version 3)
Quarter: 2022Q3

REPORT INFORMATION
  Report Type: Report from Study
  Country: CA (occurrence: CA)
  Receive Date: 20220302
  Receipt Date: 20220719
  Transmission Date: 20221027
  Serious: Yes (Hospitalization)
  Sender: FDA-Public Use
  Company Number: CA-NOVARTISPH-NVSC2022CA048095

PATIENT
  Age: 18 Year
  Sex: Female
  Weight: 42 kg

DRUGS (8)
  1. ALPELISIB [Suspect]
     Active Substance: ALPELISIB
     Indication: Metastatic neoplasm
     Dosage: 300 MG, QD
     Route: 048
     Dates: start: 20201119, end: 20220222
  2. ALPELISIB [Suspect]
     Active Substance: ALPELISIB
     Indication: Gastrointestinal stromal tumour
     Dosage: 300 MG
     Route: 048
     Dates: start: 20220311, end: 20220525
  3. VITAMIN D3 [Concomitant]
     Active Substance: CHOLECALCIFEROL
     Indication: Supplementation therapy
     Dosage: 200 IU
     Route: 065
     Dates: start: 20201119, end: 20220222
  4. LANSOPRAZOLE [Concomitant]
     Active Substance: LANSOPRAZOLE
     Indication: Gastrointestinal disorder prophylaxis
     Dosage: 30 MG, QD (1 TAB PER DAY)
     Route: 065
     Dates: start: 20201119, end: 20220222
  5. FERROUS GLUCONATE [Concomitant]
     Active Substance: FERROUS GLUCONATE
     Indication: Iron deficiency
     Dosage: 70 MG, QW
     Route: 065
     Dates: start: 20210211, end: 20220520
  6. FERROUS SULFATE [Concomitant]
     Active Substance: FERROUS SULFATE
     Indication: Product used for unknown indication
     Dosage: 35 MG, QD (ONCE/WEEK)
     Route: 065
  7. ONDANSETRON [Concomitant]
     Active Substance: ONDANSETRON
     Indication: Nausea
     Dosage: 8 MG, PRN DAILY
     Route: 065
     Dates: start: 20200623, end: 20220525
  8. CHOLECALCIFEROL [Concomitant]
     Active Substance: CHOLECALCIFEROL
     Indication: Vitamin D deficiency
     Dosage: 1000 IU, QD (2 TAB PER DAY)
     Route: 065
     Dates: start: 20201217, end: 20220525

REACTIONS (4)
  - Liver carcinoma ruptured [Unknown]
  - Abdominal pain [Unknown]
  - Malignant neoplasm progression [Not Recovered/Not Resolved]
  - Constipation [Unknown]

NARRATIVE: CASE EVENT DATE: 20220223
